FAERS Safety Report 9981790 (Version 1)
Quarter: 2014Q1

REPORT INFORMATION
  Report Type: Report from Study
  Country: US (occurrence: US)
  Receive Date: 20140307
  Receipt Date: 20140307
  Transmission Date: 20141002
  Serious: No
  Sender: FDA-Public Use
  Company Number: US-ABBVIE-13P-163-1179299-00

PATIENT
  Age: 56 Year
  Sex: Female

DRUGS (10)
  1. HUMIRA [Suspect]
     Indication: OSTEOARTHRITIS
     Dates: start: 20131019, end: 20131130
  2. HUMIRA [Suspect]
     Indication: CROHN^S DISEASE
  3. PLAQUENIL [Concomitant]
     Indication: PRODUCT USED FOR UNKNOWN INDICATION
  4. DELZICOL [Concomitant]
     Indication: PRODUCT USED FOR UNKNOWN INDICATION
  5. TOPIRAMATE [Concomitant]
     Indication: MIGRAINE
     Dosage: AT BEDTIME
  6. TOPIRAMATE [Concomitant]
     Dosage: IN AM
  7. TYLENOL [Concomitant]
     Indication: PRODUCT USED FOR UNKNOWN INDICATION
  8. RANITIDINE [Concomitant]
     Indication: PRODUCT USED FOR UNKNOWN INDICATION
  9. SIMVASTATIN [Concomitant]
     Indication: BLOOD CHOLESTEROL INCREASED
  10. MYRBETRIQ [Concomitant]
     Indication: CYSTITIS INTERSTITIAL

REACTIONS (2)
  - Arthritis [Not Recovered/Not Resolved]
  - No therapeutic response [Not Recovered/Not Resolved]
